FAERS Safety Report 10546505 (Version 1)
Quarter: 2014Q4

REPORT INFORMATION
  Report Type: Report from Study
  Country: US (occurrence: US)
  Receive Date: 20141027
  Receipt Date: 20141027
  Transmission Date: 20150529
  Serious: No
  Sender: FDA-Public Use
  Company Number: US-ABBVIE-14P-163-1225444-00

PATIENT
  Sex: Female
  Weight: 91.25 kg

DRUGS (1)
  1. LUPRON [Suspect]
     Active Substance: LEUPROLIDE ACETATE
     Indication: IN VITRO FERTILISATION
     Dates: start: 1997

REACTIONS (2)
  - Mood swings [Recovered/Resolved]
  - Weight increased [Unknown]
